FAERS Safety Report 12913761 (Version 2)
Quarter: 2016Q4

REPORT INFORMATION
  Report Type: Spontaneous
  Country: GB (occurrence: GB)
  Receive Date: 20161105
  Receipt Date: 20161105
  Transmission Date: 20170207
  Serious: Yes (Disabling, Other)
  Sender: FDA-Public Use
  Company Number: GB-ASTRAZENECA-2016SF15182

PATIENT
  Age: 59 Year
  Sex: Female

DRUGS (1)
  1. FASLODEX [Suspect]
     Active Substance: FULVESTRANT
     Route: 030
     Dates: start: 2016

REACTIONS (12)
  - Back disorder [Unknown]
  - Chills [Unknown]
  - Fall [Unknown]
  - Feeling cold [Unknown]
  - Hypoaesthesia [Unknown]
  - Anger [Unknown]
  - Demyelination [Unknown]
  - Nasopharyngitis [Unknown]
  - Dizziness [Unknown]
  - Paraesthesia [Unknown]
  - Abasia [Unknown]
  - Muscle spasms [Unknown]
